FAERS Safety Report 7220984-6 (Version None)
Quarter: 2011Q1

REPORT INFORMATION
  Report Type: 
  Country: None (occurrence: None)
  Receive Date: 20110112
  Receipt Date: 20110105
  Transmission Date: 20110831
  Serious: Yes (Other)
  Sender: FDA-Public Use
  Company Number: PHEH2010US03666

PATIENT
  Sex: Male
  Weight: 33.5 kg

DRUGS (5)
  1. FOCALIN [Suspect]
     Indication: ATTENTION DEFICIT/HYPERACTIVITY DISORDER
     Dosage: 5 MG, BID
  2. FOCALIN XR [Suspect]
     Indication: ATTENTION DEFICIT/HYPERACTIVITY DISORDER
     Dosage: 10 MG, QD
     Route: 048
  3. FOCALIN XR [Suspect]
     Dosage: 10+5MG
     Route: 048
  4. FOCALIN XR [Suspect]
     Dosage: 10 MG QAM
     Route: 048
  5. FOCALIN [Suspect]
     Dosage: 10 MG, BID

REACTIONS (21)
  - ABDOMINAL PAIN [None]
  - PENILE ADHESION [None]
  - DRUG EFFECT DECREASED [None]
  - ABSCESS [None]
  - SCAR [None]
  - LOSS OF CONSCIOUSNESS [None]
  - GROWTH RETARDATION [None]
  - SUICIDAL IDEATION [None]
  - CELLULITIS [None]
  - DECREASED APPETITE [None]
  - SKIN PAPILLOMA [None]
  - WEIGHT DECREASED [None]
  - CLUSTER HEADACHE [None]
  - VOMITING [None]
  - ABDOMINAL DISCOMFORT [None]
  - FEELING ABNORMAL [None]
  - FATIGUE [None]
  - ERYTHEMA INFECTIOSUM [None]
  - ASTHENIA [None]
  - DISTURBANCE IN ATTENTION [None]
  - COGNITIVE DISORDER [None]
